FAERS Safety Report 6249559-2 (Version None)
Quarter: 2009Q2

REPORT INFORMATION
  Report Type: 
  Country: None (occurrence: None)
  Receive Date: 20090625
  Receipt Date: 20090618
  Transmission Date: 20091009
  Serious: Yes (Death)
  Sender: FDA-Public Use
  Company Number: 2009007281

PATIENT
  Sex: Male

DRUGS (1)
  1. EFFENTORA(TABLETS) [Suspect]
     Dosage: BU
     Route: 002

REACTIONS (1)
  - NO ADVERSE EVENT [None]
